FAERS Safety Report 6297857-9 (Version None)
Quarter: 2009Q3

REPORT INFORMATION
  Report Type: 
  Country: None (occurrence: None)
  Receive Date: 20090804
  Receipt Date: 20090804
  Transmission Date: 20100115
  Serious: Yes (Other)
  Sender: FDA-Public Use
  Company Number: None

PATIENT
  Age: 67 Year
  Sex: Male
  Weight: 72.5755 kg

DRUGS (2)
  1. DIVALPROEX 500 MGM UPSHER/SMITH [Suspect]
     Indication: CONVULSION
     Dosage: 2, BID, PO
     Route: 048
     Dates: start: 20080823, end: 20090803
  2. LEVETIRACETAM 500 MGM MYLAN [Suspect]
     Indication: CONVULSION
     Dosage: 1, BID, PO
     Route: 048
     Dates: start: 20081124, end: 20090803

REACTIONS (2)
  - CONVULSION [None]
  - TREMOR [None]
